FAERS Safety Report 4589566-9 (Version None)
Quarter: 2005Q1

REPORT INFORMATION
  Report Type: 
  Country: None (occurrence: None)
  Receive Date: 20050217
  Receipt Date: 20050202
  Transmission Date: 20050727
  Serious: Yes (Death)
  Sender: FDA-Public Use
  Company Number: 10031

PATIENT
  Age: 4 Year
  Sex: Female

DRUGS (6)
  1. METHOTREXATE [Suspect]
     Indication: ACUTE LEUKAEMIA
  2. CYTARABINE [Suspect]
     Indication: ACUTE LEUKAEMIA
  3. DAUNORUBICIN HCL [Suspect]
     Indication: ACUTE LYMPHOCYTIC LEUKAEMIA
  4. VINCRISTINE [Suspect]
     Indication: LEUKAEMIA
  5. ASPARAGINASE [Suspect]
  6. CYCLOPHOSPHAMIDE [Suspect]

REACTIONS (2)
  - BACTERIAL SEPSIS [None]
  - MULTI-ORGAN FAILURE [None]
